FAERS Safety Report 16142435 (Version 1)
Quarter: 2019Q2

REPORT INFORMATION
  Report Type: Report from Study
  Country: US (occurrence: US)
  Receive Date: 20190401
  Receipt Date: 20190401
  Transmission Date: 20190711
  Serious: Yes (Hospitalization)
  Sender: FDA-Public Use
  Company Number: US-CELGENEUS-USA-20190309126

PATIENT
  Age: 86 Year
  Sex: Female
  Weight: 86.71 kg

DRUGS (1)
  1. VIDAZA [Suspect]
     Active Substance: AZACITIDINE
     Indication: MYELODYSPLASTIC SYNDROME
     Dosage: 146 MILLIGRAM
     Route: 041
     Dates: start: 20160328, end: 20170605

REACTIONS (4)
  - Pleural effusion [Recovered/Resolved]
  - Anaemia [Recovered/Resolved]
  - Colitis ischaemic [Recovered/Resolved]
  - Sepsis [Recovered/Resolved]

NARRATIVE: CASE EVENT DATE: 20160330
